FAERS Safety Report 4802632-5 (Version None)
Quarter: 2005Q4

REPORT INFORMATION
  Report Type: 
  Country: None (occurrence: None)
  Receive Date: 20051014
  Receipt Date: 20050711
  Transmission Date: 20060501
  Serious: Yes (Other)
  Sender: FDA-Public Use
  Company Number: 2005062004

PATIENT
  Sex: Female
  Weight: 44.4525 kg

DRUGS (7)
  1. NEURONTIN [Suspect]
     Indication: CONVULSION
     Dosage: 700 MG (6 IN 1 D), ORAL
     Route: 048
  2. NEURONTIN [Suspect]
     Indication: MENTAL DISORDER
     Dosage: 700 MG (6 IN 1 D), ORAL
     Route: 048
  3. GABAPENTIN [Suspect]
     Indication: CONVULSION
     Dosage: 700 MG (6 IN 1 D), ORAL
     Route: 048
     Dates: start: 20050201
  4. GABAPENTIN [Suspect]
     Indication: MENTAL DISORDER
     Dosage: 700 MG (6 IN 1 D), ORAL
     Route: 048
     Dates: start: 20050201
  5. EFFEXOR [Concomitant]
  6. ARICEPT (LISINOPRIL) [Concomitant]
  7. LANOXIN [Concomitant]

REACTIONS (3)
  - CEREBROVASCULAR ACCIDENT [None]
  - DIARRHOEA [None]
  - DISEASE PROGRESSION [None]
